FAERS Safety Report 11124344 (Version 1)
Quarter: 2015Q2

REPORT INFORMATION
  Report Type: Spontaneous
  Country: US (occurrence: None)
  Receive Date: 20150519
  Receipt Date: 20150519
  Transmission Date: 20150821
  Serious: No
  Sender: FDA-Public Use
  Company Number: None

PATIENT
  Age: 62 Year
  Sex: Female
  Weight: 63.5 kg

DRUGS (4)
  1. RISEDRONATE SODIUM 150 MG ACTAVIS [Suspect]
     Active Substance: RISEDRONATE SODIUM
     Indication: OSTEOPOROSIS
     Dates: start: 20150407, end: 20150504
  2. CALCIUM [Concomitant]
     Active Substance: CALCIUM
  3. MULTI VITAMIN [Concomitant]
     Active Substance: VITAMINS
  4. VITAMIN D [Concomitant]
     Active Substance: CHOLECALCIFEROL

REACTIONS (14)
  - Musculoskeletal chest pain [None]
  - Tremor [None]
  - Bone pain [None]
  - Pain [None]
  - Burning sensation [None]
  - Vomiting [None]
  - Diarrhoea [None]
  - Temporomandibular joint syndrome [None]
  - Dyspepsia [None]
  - Influenza like illness [None]
  - Malaise [None]
  - Condition aggravated [None]
  - Feeling abnormal [None]
  - Painful respiration [None]

NARRATIVE: CASE EVENT DATE: 20150407
